FAERS Safety Report 23250781 (Version 2)
Quarter: 2023Q4

REPORT INFORMATION
  Report Type: Report from Study
  Country: US (occurrence: US)
  Receive Date: 20231201
  Receipt Date: 20231220
  Transmission Date: 20240109
  Serious: No
  Sender: FDA-Public Use
  Company Number: US-ALXN-A202312085

PATIENT
  Sex: Female

DRUGS (1)
  1. STRENSIQ [Suspect]
     Active Substance: ASFOTASE ALFA
     Indication: Hypophosphatasia
     Dosage: UNK
     Route: 065

REACTIONS (6)
  - Ligament pain [Not Recovered/Not Resolved]
  - Calcinosis [Not Recovered/Not Resolved]
  - Spinal pain [Recovering/Resolving]
  - Mobility decreased [Recovering/Resolving]
  - Intervertebral disc protrusion [Recovering/Resolving]
  - Dysstasia [Unknown]
